FAERS Safety Report 8915715 (Version 2)
Quarter: 2012Q4

REPORT INFORMATION
  Report Type: 
  Country: FR (occurrence: FR)
  Receive Date: 20121119
  Receipt Date: 20121126
  Transmission Date: 20130627
  Serious: Yes (Other)
  Sender: FDA-Public Use
  Company Number: FR-ABBOTT-12P-056-0992480-00

PATIENT
  Sex: Female

DRUGS (1)
  1. DEPAKINE [Suspect]
     Indication: MATERNAL EXPOSURE TIMING UNSPECIFIED
     Route: 064

REACTIONS (7)
  - Hypertonia [Recovered/Resolved]
  - Foetal exposure during pregnancy [Unknown]
  - Spinal disorder [Recovered/Resolved]
  - Tremor [Recovered/Resolved]
  - Ear infection [Recovered/Resolved]
  - Psychomotor skills impaired [Recovered/Resolved]
  - Hypoacusis [Recovered/Resolved]
